FAERS Safety Report 14776587 (Version 3)
Quarter: 2018Q3

REPORT INFORMATION
  Report Type: Spontaneous
  Country: JP (occurrence: JP)
  Receive Date: 20180418
  Receipt Date: 20180801
  Transmission Date: 20181010
  Serious: Yes (Death)
  Sender: FDA-Public Use
  Company Number: PHJP2018JP008976

PATIENT
  Sex: Male
  Weight: 67 kg

DRUGS (7)
  1. GILENYA [Suspect]
     Active Substance: FINGOLIMOD HYDROCHLORIDE
     Indication: MULTIPLE SCLEROSIS RELAPSE PROPHYLAXIS
     Dosage: 0.5 MG, QD (AFTER MORNING MEAL)
     Route: 048
     Dates: start: 20120105, end: 20180110
  2. LANSOPRAZOLE. [Concomitant]
     Active Substance: LANSOPRAZOLE
     Indication: PROPHYLAXIS AGAINST GASTROINTESTINAL ULCER
     Dosage: 15 MG, QD (AFTER MORNING MEAL)
     Route: 048
     Dates: end: 20180110
  3. REBAMIPIDE [Concomitant]
     Active Substance: REBAMIPIDE
     Indication: PROPHYLAXIS AGAINST GASTROINTESTINAL ULCER
     Dosage: 100 MG, BID
     Route: 048
  4. LOXONIN [Concomitant]
     Active Substance: LOXOPROFEN SODIUM
     Indication: BACK PAIN
     Dosage: 60 MG, BID
     Route: 048
     Dates: end: 20180110
  5. AMOBAN [Concomitant]
     Active Substance: ZOPICLONE
     Indication: INSOMNIA
     Dosage: 7.5 MG, QD (BEFORE BEDTIME)
     Route: 048
  6. KAKKONTO [Concomitant]
     Active Substance: HERBALS
     Indication: NASOPHARYNGITIS
     Dosage: 2.5 G, BID (BEFORE MORNING MEAL AND BEFORE EVENING MEAL)
     Route: 048
  7. DAIPHEN [Concomitant]
     Active Substance: SULFAMETHOXAZOLE\TRIMETHOPRIM
     Indication: PROPHYLAXIS URINARY TRACT INFECTION
     Dosage: 1 DF, QD (AFTER MORNING MEAL)
     Route: 048
     Dates: start: 20170814, end: 20180110

REACTIONS (1)
  - Drowning [Fatal]
